FAERS Safety Report 7442465-7 (Version None)
Quarter: 2011Q2

REPORT INFORMATION
  Report Type: 
  Country: None (occurrence: None)
  Receive Date: 20110425
  Receipt Date: 20110425
  Transmission Date: 20111010
  Serious: Yes (Life-Threatening, Hospitalization)
  Sender: FDA-Public Use
  Company Number: None

PATIENT
  Age: 49 Year
  Sex: Male
  Weight: 77.1115 kg

DRUGS (2)
  1. PACLITAXEL [Suspect]
     Indication: CORONARY ARTERY DISEASE
     Dates: start: 20110316, end: 20110316
  2. PACLITAXEL [Suspect]
     Dates: start: 20110316, end: 20110316

REACTIONS (26)
  - ANGINA PECTORIS [None]
  - BLOOD PRESSURE DECREASED [None]
  - DYSPEPSIA [None]
  - PULSE PRESSURE DECREASED [None]
  - ABDOMINAL PAIN UPPER [None]
  - CONFUSIONAL STATE [None]
  - SINUSITIS [None]
  - CARDIAC FAILURE CONGESTIVE [None]
  - HYPOAESTHESIA [None]
  - HYPERTENSION [None]
  - ANORECTAL DISCOMFORT [None]
  - LOCAL SWELLING [None]
  - BURNING SENSATION [None]
  - URINE ODOUR ABNORMAL [None]
  - VISION BLURRED [None]
  - NEUROPATHY PERIPHERAL [None]
  - OROPHARYNGEAL PAIN [None]
  - PAIN IN EXTREMITY [None]
  - NAUSEA [None]
  - DYSPNOEA [None]
  - EYE IRRITATION [None]
  - LIP SWELLING [None]
  - POLYCYTHAEMIA [None]
  - DIZZINESS [None]
  - BACK PAIN [None]
  - OEDEMA PERIPHERAL [None]
